FAERS Safety Report 9452844 (Version 1)
Quarter: 2013Q3

REPORT INFORMATION
  Report Type: Report from Study
  Country: CA (occurrence: CA)
  Receive Date: 20130812
  Receipt Date: 20130812
  Transmission Date: 20140515
  Serious: Yes (Other)
  Sender: FDA-Public Use
  Company Number: CA-JNJFOC-20130801591

PATIENT
  Age: 51 Year
  Sex: Female
  Weight: 60 kg

DRUGS (8)
  1. REMICADE [Suspect]
     Indication: RHEUMATOID ARTHRITIS
     Dosage: 121 INFUSION
     Route: 042
     Dates: start: 20130801
  2. REMICADE [Suspect]
     Indication: RHEUMATOID ARTHRITIS
     Route: 042
     Dates: start: 2002
  3. METHOTREXATE [Concomitant]
     Indication: RHEUMATOID ARTHRITIS
     Route: 058
  4. SULFASALAZINE [Concomitant]
     Indication: RHEUMATOID ARTHRITIS
     Route: 048
  5. FLOVENT [Concomitant]
     Indication: ASTHMA
     Route: 065
  6. AMITRIPTYLINE [Concomitant]
     Indication: FIBROMYALGIA
     Route: 048
  7. CO-ETIDROCAL [Concomitant]
     Indication: OSTEOPOROSIS
     Route: 065
  8. VENTOLIN [Concomitant]
     Indication: ASTHMA
     Route: 065

REACTIONS (1)
  - Joint dislocation [Not Recovered/Not Resolved]
